FAERS Safety Report 5195041-3 (Version None)
Quarter: 2006Q4

REPORT INFORMATION
  Report Type: 
  Country: None (occurrence: None)
  Receive Date: 20061229
  Receipt Date: 20061221
  Transmission Date: 20070319
  Serious: Yes (Other)
  Sender: FDA-Public Use
  Company Number: US-JNJFOC-20061205909

PATIENT
  Sex: Male
  Weight: 72.58 kg

DRUGS (5)
  1. DITROPAN XL [Suspect]
     Indication: POLLAKIURIA
     Route: 048
  2. SINEMET [Concomitant]
     Indication: PARKINSON'S DISEASE
     Route: 048
  3. L-DOPA [Concomitant]
     Indication: PARKINSON'S DISEASE
     Route: 048
  4. MIDODRINE [Concomitant]
     Indication: ORTHOSTATIC HYPOTENSION
     Route: 048
  5. FLORINEF [Concomitant]
     Indication: DRUG USE FOR UNKNOWN INDICATION

REACTIONS (3)
  - CHEST PAIN [None]
  - NECK PAIN [None]
  - PAIN IN EXTREMITY [None]
